FAERS Safety Report 8531549-8 (Version None)
Quarter: 2012Q2

REPORT INFORMATION
  Report Type: 
  Country: None (occurrence: None)
  Receive Date: 20120412
  Receipt Date: 20110523
  Transmission Date: 20120825
  Serious: Yes (Other)
  Sender: FDA-Public Use
  Company Number: 117616

PATIENT
  Age: 50 Year
  Sex: Female
  Weight: 66.2252 kg

DRUGS (1)
  1. ADRIAMYCIN PFS [Suspect]
     Indication: ACUTE PROMYELOCYTIC LEUKAEMIA

REACTIONS (1)
  - CARDIOTOXICITY [None]
